FAERS Safety Report 24293425 (Version 1)
Quarter: 2024Q3

REPORT INFORMATION
  Report Type: Spontaneous
  Country: US (occurrence: None)
  Receive Date: 20240906
  Receipt Date: 20240906
  Transmission Date: 20241017
  Serious: No
  Sender: DOMPE FARMACEUTICI
  Company Number: US-FARMAPROD-202401-0111

PATIENT
  Age: 69 Year
  Sex: Female

DRUGS (14)
  1. OXERVATE [Suspect]
     Active Substance: CENEGERMIN-BKBJ
     Indication: Neurotrophic keratopathy
     Route: 047
     Dates: start: 20240109
  2. REFRESH CLASSIC [Concomitant]
     Active Substance: POLYVINYL ALCOHOL\POVIDONE
  3. REFRESH CELLUVISC [Concomitant]
     Active Substance: CARBOXYMETHYLCELLULOSE SODIUM
     Dosage: DROPPER GEL
  4. VITAMIN D3 [Concomitant]
     Active Substance: CHOLECALCIFEROL
  5. PROBIOTIC-10 [Concomitant]
  6. FLUTICASONE PROPIONATE\SALMETEROL XINAFOATE [Concomitant]
     Active Substance: FLUTICASONE PROPIONATE\SALMETEROL XINAFOATE
  7. CEPHALEXIN [Concomitant]
     Active Substance: CEPHALEXIN
  8. CETIRIZINE HYDROCHLORIDE [Concomitant]
     Active Substance: CETIRIZINE HYDROCHLORIDE
  9. SERTRALINE HYDROCHLORIDE [Concomitant]
     Active Substance: SERTRALINE HYDROCHLORIDE
  10. CRANBERRY [Concomitant]
     Active Substance: CRANBERRY
  11. MULTIVITAMIN 50 PLUS [Concomitant]
  12. CITRACAL + D MAXIMUM [Concomitant]
  13. B12 ACTIVE [Concomitant]
  14. FISH OIL [Concomitant]
     Active Substance: FISH OIL
     Dosage: 100-160 MG

REACTIONS (4)
  - Periorbital pain [Not Recovered/Not Resolved]
  - Periorbital swelling [Not Recovered/Not Resolved]
  - Eye pain [Unknown]
  - Eye irritation [Unknown]

NARRATIVE: CASE EVENT DATE: 20240110
